FAERS Safety Report 5861175-0 (Version None)
Quarter: 2008Q3

REPORT INFORMATION
  Report Type: 
  Country: None (occurrence: None)
  Receive Date: 20080827
  Receipt Date: 20080818
  Transmission Date: 20090109
  Serious: Yes (Other)
  Sender: FDA-Public Use
  Company Number: US-GENENTECH-266878

PATIENT
  Age: 49 Year
  Sex: Male

DRUGS (10)
  1. RITUXAN [Suspect]
     Indication: CASTLEMAN'S DISEASE
     Dosage: 375 MG/M2, Q3W
     Route: 042
  2. CYCLOPHOSPHAMIDE [Suspect]
     Indication: CASTLEMAN'S DISEASE
     Dosage: 750 MG/M2, UNK
  3. DOXORUBICIN HCL [Suspect]
     Indication: CASTLEMAN'S DISEASE
     Dosage: 50 MG/M2, UNK
  4. VINCRISTINE [Suspect]
     Indication: CASTLEMAN'S DISEASE
     Dosage: 1.4 MG/M2, UNK
  5. PREDNISONE TAB [Suspect]
     Indication: CASTLEMAN'S DISEASE
     Dosage: 100 MG, UNK
  6. FUZEON [Suspect]
     Indication: HIV INFECTION
  7. VIREAD [Suspect]
     Indication: HIV INFECTION
  8. EPIVIR [Suspect]
     Indication: DRUG USE FOR UNKNOWN INDICATION
  9. VIDEX [Suspect]
     Indication: HIV INFECTION
  10. UNKNOWN DRUG [Suspect]
     Indication: HIV INFECTION

REACTIONS (1)
  - FEBRILE NEUTROPENIA [None]
